FAERS Safety Report 9243160 (Version 1)
Quarter: 2013Q2

REPORT INFORMATION
  Report Type: Report from Study
  Country: None (occurrence: JP)
  Receive Date: 20130419
  Receipt Date: 20130419
  Transmission Date: 20140414
  Serious: Yes (Hospitalization)
  Sender: FDA-Public Use
  Company Number: JP-ALLERGAN-1305644US

PATIENT
  Age: 68 Year
  Sex: Male

DRUGS (5)
  1. BIMATOPROST 0.03% SOL-EYE (9106X) [Suspect]
     Indication: OPEN ANGLE GLAUCOMA
     Dosage: 1 GTT, QHS
     Route: 047
     Dates: start: 20110413, end: 20120223
  2. TIMOPTOL-XE [Concomitant]
     Indication: PRODUCT USED FOR UNKNOWN INDICATION
     Dosage: UNK
     Route: 047
     Dates: start: 20090109, end: 20111130
  3. AZOPT [Concomitant]
     Indication: PRODUCT USED FOR UNKNOWN INDICATION
     Dosage: UNK
     Route: 047
     Dates: start: 20090109, end: 20111130
  4. COSOPT [Concomitant]
     Indication: PRODUCT USED FOR UNKNOWN INDICATION
     Dosage: UNK
     Route: 047
     Dates: start: 20111130, end: 20120223
  5. DETANTOL [Concomitant]
     Indication: PRODUCT USED FOR UNKNOWN INDICATION
     Dosage: UNK
     Route: 047
     Dates: start: 20111130, end: 20120223

REACTIONS (1)
  - Intraocular pressure increased [Recovered/Resolved]
